FAERS Safety Report 13233011 (Version 4)
Quarter: 2017Q1

REPORT INFORMATION
  Report Type: Report from Study
  Country: US (occurrence: US)
  Receive Date: 20170214
  Receipt Date: 20170329
  Transmission Date: 20170428
  Serious: Yes (Hospitalization, Other)
  Sender: FDA-Public Use
  Company Number: US-AMGEN-USASL2017021688

PATIENT
  Age: 57 Year
  Sex: Male

DRUGS (2)
  1. PREDNISONE. [Concomitant]
     Active Substance: PREDNISONE
     Dosage: UNK
  2. ENBREL [Suspect]
     Active Substance: ETANERCEPT
     Indication: RHEUMATOID ARTHRITIS
     Dosage: 50 MG, QWK
     Route: 065
     Dates: end: 20170214

REACTIONS (9)
  - Productive cough [Not Recovered/Not Resolved]
  - Diarrhoea [Unknown]
  - Sputum discoloured [Not Recovered/Not Resolved]
  - Sinus congestion [Not Recovered/Not Resolved]
  - Corona virus infection [Recovered/Resolved]
  - Oropharyngeal pain [Unknown]
  - Hyperhidrosis [Unknown]
  - Arthralgia [Not Recovered/Not Resolved]
  - Pneumonia [Unknown]

NARRATIVE: CASE EVENT DATE: 2017
